FAERS Safety Report 9896128 (Version 1)
Quarter: 2014Q1

REPORT INFORMATION
  Report Type: Spontaneous
  Country: US (occurrence: US)
  Receive Date: 20140213
  Receipt Date: 20140213
  Transmission Date: 20141002
  Serious: Yes (Other)
  Sender: FDA-Public Use
  Company Number: US-BRISTOL-MYERS SQUIBB COMPANY-19715176

PATIENT
  Age: 51 Year
  Sex: Female

DRUGS (14)
  1. ORENCIA [Suspect]
     Indication: RHEUMATOID ARTHRITIS
     Route: 042
     Dates: start: 20061121
  2. REMICADE [Suspect]
     Indication: RHEUMATOID ARTHRITIS
     Route: 042
  3. METHOTREXATE [Concomitant]
  4. NAPROSYN [Concomitant]
  5. FOLIC ACID [Concomitant]
  6. VITAMIN D [Concomitant]
  7. CALCIUM [Concomitant]
  8. ACTONEL [Concomitant]
  9. PREVACID [Concomitant]
  10. STATEX [Concomitant]
  11. RIVOTRIL [Concomitant]
  12. DESYREL [Concomitant]
  13. ZOLOFT [Concomitant]
  14. FENTANYL [Concomitant]

REACTIONS (3)
  - Uterine carcinoma in situ [Unknown]
  - Drug hypersensitivity [Unknown]
  - Dental caries [Unknown]
